FAERS Safety Report 9426372 (Version 3)
Quarter: 2015Q1

REPORT INFORMATION
  Report Type: Spontaneous
  Country: FI (occurrence: FI)
  Receive Date: 20130730
  Receipt Date: 20150121
  Transmission Date: 20150721
  Serious: Yes (Other)
  Sender: FDA-Public Use
  Company Number: FI-JNJFOC-20130709189

PATIENT
  Sex: Male

DRUGS (2)
  1. NICORETTE [Suspect]
     Active Substance: NICOTINE
     Route: 065
  2. NICORETTE [Suspect]
     Active Substance: NICOTINE
     Indication: SMOKING CESSATION THERAPY
     Route: 002

REACTIONS (8)
  - Anxiety [Unknown]
  - Fatigue [Unknown]
  - Abnormal behaviour [Recovering/Resolving]
  - Restlessness [Unknown]
  - Panic disorder [Unknown]
  - Product packaging issue [Unknown]
  - Feeling abnormal [Unknown]
  - Asthenia [Unknown]
